FAERS Safety Report 5379529-8 (Version None)
Quarter: 2007Q3

REPORT INFORMATION
  Report Type: 
  Country: None (occurrence: None)
  Receive Date: 20070703
  Receipt Date: 20070626
  Transmission Date: 20080115
  Serious: Yes (Death)
  Sender: FDA-Public Use
  Company Number: 235125K07USA

PATIENT
  Age: 56 Year
  Sex: Female

DRUGS (11)
  1. REBIF [Suspect]
     Indication: MULTIPLE SCLEROSIS
     Dates: start: 20040416, end: 20070513
  2. BACLOFEN [Concomitant]
  3. EFFEXOR XR [Concomitant]
  4. LIPITOR [Concomitant]
  5. KLONOPIN [Concomitant]
  6. NEURONTIN [Concomitant]
  7. ZOCOR [Concomitant]
  8. WELLBUTRIN SR [Concomitant]
  9. MOTRIN [Concomitant]
  10. EVISTA [Concomitant]
  11. FLOMAX (MORNIFLUMATE) [Concomitant]

REACTIONS (1)
  - RUPTURED CEREBRAL ANEURYSM [None]
